FAERS Safety Report 5010413-5 (Version None)
Quarter: 2006Q2

REPORT INFORMATION
  Report Type: 
  Country: None (occurrence: None)
  Receive Date: 20060404
  Receipt Date: 20051227
  Transmission Date: 20061013
  Serious: No
  Sender: FDA-Public Use
  Company Number: US200512004309

PATIENT
  Sex: Female

DRUGS (1)
  1. CYMBALTA [Suspect]
     Indication: DEPRESSION
     Dosage: 60 MG, DAILY (1/D), ORAL
     Route: 048
     Dates: start: 20050901

REACTIONS (1)
  - BLOOD PRESSURE INCREASED [None]
